FAERS Safety Report 10169149 (Version 1)
Quarter: 2014Q2

REPORT INFORMATION
  Report Type: Spontaneous
  Country: CN (occurrence: CN)
  Receive Date: 20140513
  Receipt Date: 20140513
  Transmission Date: 20141212
  Serious: Yes (Other)
  Sender: FDA-Public Use
  Company Number: CN-ASTRAZENECA-2014SE30401

PATIENT
  Age: 80 Year
  Sex: Female

DRUGS (2)
  1. PLENDIL [Suspect]
     Indication: HYPERTENSION
     Route: 048
     Dates: start: 2009, end: 2013
  2. DIOVAN [Concomitant]
     Route: 048

REACTIONS (2)
  - Angina unstable [Unknown]
  - Coronary artery restenosis [Recovering/Resolving]
